FAERS Safety Report 10238910 (Version 3)
Quarter: 2014Q4

REPORT INFORMATION
  Report Type: Spontaneous
  Country: DE (occurrence: None)
  Receive Date: 20140612
  Receipt Date: 20141222
  Transmission Date: 20150528
  Serious: Yes (Life-Threatening, Hospitalization, Other)
  Sender: FDA-Public Use
  Company Number: 2014DE0226

PATIENT
  Age: 11 Month
  Sex: Female

DRUGS (9)
  1. FERRO SANOL (FERROUS GLYCINE SULFATE) (FERROUS GLYCINE SULFATE) [Concomitant]
  2. INDOMETACIN [Concomitant]
     Active Substance: INDOMETHACIN
  3. MICONAZOL GEL (MICONAOLE NITRATE) (MINONAZOLE NITRATE) [Concomitant]
  4. PREDNISONE (PREDNISONE) [Concomitant]
     Active Substance: PREDNISONE
  5. OMEPRAZOLE (OMEPRAZOLE) (OMEPRAZOLE) [Concomitant]
     Active Substance: OMEPRAZOLE
  6. CICLOSPORIN A (CICLOSPORIN) (CICLOSPORIN) [Concomitant]
  7. KINERET [Suspect]
     Active Substance: ANAKINRA
     Indication: CRYOPYRIN ASSOCIATED PERIODIC SYNDROME
     Dosage: 8 MONTHS
     Dates: start: 20131003, end: 20131029
  8. TRIMETHOPRIM (TRIMETHOPRIM) (TRIMETHOPRIM) [Concomitant]
     Active Substance: TRIMETHOPRIM
  9. VITAMIN D (LEKOVIT CA) (COLECALCIFEROL, CALCIU, CARBONAE) [Concomitant]

REACTIONS (14)
  - Gastrointestinal infection [None]
  - Hepatosplenomegaly [None]
  - Respiratory failure [None]
  - Lymphadenopathy [None]
  - Pyrexia [None]
  - Haemodialysis [None]
  - Pneumonia [None]
  - Disseminated intravascular coagulation [None]
  - Viral diarrhoea [None]
  - Histiocytosis haematophagic [None]
  - Cardiovascular insufficiency [None]
  - Pleural effusion [None]
  - Viral infection [None]
  - Gastroenteritis viral [None]

NARRATIVE: CASE EVENT DATE: 201310
